FAERS Safety Report 9200061 (Version 1)
Quarter: 2013Q1

REPORT INFORMATION
  Report Type: Spontaneous
  Country: JP (occurrence: JP)
  Receive Date: 20130329
  Receipt Date: 20130329
  Transmission Date: 20140127
  Serious: Yes (Hospitalization)
  Sender: FDA-Public Use
  Company Number: JP-EISAI INC-E2090-02580-SPO-JP

PATIENT
  Age: 67 Year
  Sex: Male

DRUGS (6)
  1. EXCEGRAN [Suspect]
     Indication: PARKINSON^S DISEASE
     Dosage: UNKNOWN
     Route: 048
  2. MADOPAR [Suspect]
     Indication: PARKINSON^S DISEASE
     Dosage: UNKNOWN
     Route: 048
  3. ARTANE [Suspect]
     Indication: PARKINSON^S DISEASE
     Dosage: UNKNOWN
     Route: 048
  4. COMTAN [Suspect]
     Indication: PARKINSON^S DISEASE
     Dosage: UNKNOWN
     Route: 048
  5. FP-OD [Suspect]
     Indication: PARKINSON^S DISEASE
     Dosage: UNKNOWN
     Route: 048
  6. PERMAX [Suspect]
     Indication: PARKINSON^S DISEASE
     Dosage: UNKNOWN
     Route: 048

REACTIONS (3)
  - Megacolon [Unknown]
  - Volvulus [Unknown]
  - Constipation [Unknown]
